FAERS Safety Report 18180739 (Version 1)
Quarter: 2020Q3

REPORT INFORMATION
  Report Type: Spontaneous
  Country: US (occurrence: US)
  Receive Date: 20200821
  Receipt Date: 20200821
  Transmission Date: 20201103
  Serious: Yes (Other)
  Sender: FDA-Public Use
  Company Number: None

PATIENT
  Age: 66 Year
  Sex: Male
  Weight: 74.4 kg

DRUGS (15)
  1. AMLODIPINE [Concomitant]
     Active Substance: AMLODIPINE BESYLATE
  2. CHOLECALCIFEROL 25 MCG [Concomitant]
     Dates: start: 20200717, end: 20200726
  3. DEXAMETHASONE. [Concomitant]
     Active Substance: DEXAMETHASONE
     Dates: start: 20200717, end: 20200726
  4. LANTUS [Concomitant]
     Active Substance: INSULIN GLARGINE
     Dates: start: 20200717
  5. KAYEXALATE [Concomitant]
     Active Substance: SODIUM POLYSTYRENE SULFONATE
     Dates: start: 20200717, end: 20200717
  6. HUMALOG [Concomitant]
     Active Substance: INSULIN LISPRO
     Dates: start: 20200717
  7. DEXTROMETHORPHAN GUAIFENESIN [Concomitant]
     Dates: start: 20200717, end: 20200721
  8. ZINC SULFATE. [Concomitant]
     Active Substance: ZINC SULFATE
     Dates: start: 20200717, end: 20200726
  9. CEFTRIAXONE 2G [Concomitant]
     Dates: start: 20200717, end: 20200717
  10. FAMOTIDINE. [Concomitant]
     Active Substance: FAMOTIDINE
     Dates: start: 20200717, end: 20200726
  11. MELATONIN [Concomitant]
     Active Substance: MELATONIN
     Dates: start: 20200717, end: 20200725
  12. REMDESIVIR. [Suspect]
     Active Substance: REMDESIVIR
     Indication: COVID-19
     Route: 040
     Dates: start: 20200717, end: 20200721
  13. ASCORBIC ACID 500MG [Concomitant]
     Dates: start: 20200717
  14. AZITHROMYCIN 500MG [Concomitant]
     Active Substance: AZITHROMYCIN
     Dates: start: 20200717, end: 20200720
  15. ENOXAPARIN 40 MG [Concomitant]
     Active Substance: ENOXAPARIN
     Dates: start: 20200717, end: 20200726

REACTIONS (2)
  - Therapy cessation [None]
  - Aspartate aminotransferase increased [None]

NARRATIVE: CASE EVENT DATE: 20200721
